FAERS Safety Report 19144371 (Version 3)
Quarter: 2021Q2

REPORT INFORMATION
  Report Type: Other
  Country: US (occurrence: US)
  Receive Date: 20210416
  Receipt Date: 20210527
  Transmission Date: 20210717
  Serious: Yes (Other)
  Sender: FDA-Public Use
  Company Number: US-ROCHE-2786444

PATIENT
  Age: 81 Year
  Sex: Female
  Weight: 79.45 kg

DRUGS (20)
  1. ACTEMRA [Suspect]
     Active Substance: TOCILIZUMAB
     Indication: GIANT CELL ARTERITIS
     Dosage: ONGOING NO, EVERY 4 WEEKS
     Route: 042
     Dates: start: 201802, end: 201910
  2. CRESTOR [Concomitant]
     Active Substance: ROSUVASTATIN CALCIUM
     Indication: BLOOD CHOLESTEROL INCREASED
     Dosage: ONGOING YES
     Route: 048
     Dates: start: 2018
  3. AMOXICILLIN. [Concomitant]
     Active Substance: AMOXICILLIN
     Indication: URINARY TRACT INFECTION
     Dosage: ONGOING NO
     Route: 048
     Dates: start: 201910, end: 201910
  4. HYDROCORTISONE SODIUM SUCCINATE [Concomitant]
     Active Substance: HYDROCORTISONE SODIUM SUCCINATE
     Dosage: PREMEDICATION?50MG/1ML
     Route: 042
  5. WARFARIN SODIUM. [Concomitant]
     Active Substance: WARFARIN SODIUM
     Dosage: 1/2 TABLET OR 1.5 MG PER DOSE, ONGOING YES
     Route: 048
     Dates: start: 2009
  6. ACTEMRA [Suspect]
     Active Substance: TOCILIZUMAB
     Indication: POLYMYALGIA RHEUMATICA
     Dosage: ONGOING NO, EVERY 4 WEEKS
     Route: 042
     Dates: start: 201912, end: 202010
  7. PREDNISONE. [Concomitant]
     Active Substance: PREDNISONE
     Indication: GIANT CELL ARTERITIS
     Dosage: ONGOING NO, DOWN TITRATING DOSE BY 2.5 MG EVERY 2 WEEKS
     Route: 048
     Dates: start: 201801
  8. ACTEMRA [Suspect]
     Active Substance: TOCILIZUMAB
     Dosage: ONGOING NO, EVERY 4 WEEKS
     Route: 042
     Dates: start: 202012, end: 20210224
  9. CEFDINIR. [Concomitant]
     Active Substance: CEFDINIR
     Indication: SINUSITIS
     Dosage: MAYBE TWICE A DAY?NOT SURE
     Route: 048
     Dates: start: 20210304, end: 20210314
  10. WARFARIN SODIUM. [Concomitant]
     Active Substance: WARFARIN SODIUM
     Dosage: ONGOING YES
     Route: 048
     Dates: start: 2009
  11. CO Q 100 [Concomitant]
     Dosage: ONGOING YES
     Route: 048
     Dates: start: 2014
  12. LEVOFLOXACIN. [Concomitant]
     Active Substance: LEVOFLOXACIN
     Indication: URINARY TRACT INFECTION
     Dosage: ONGOING NO
     Route: 048
     Dates: start: 201910
  13. ACTEMRA [Suspect]
     Active Substance: TOCILIZUMAB
     Dosage: 8MG/KG IN 100 ML 0.9% SODIUM CHLORIDE OVER 1 HOUR, 1 (400 MG/20ML VIAL)?ADMINISTER VIA IV INFUSION O
     Route: 042
  14. MAXZIDE [Concomitant]
     Active Substance: HYDROCHLOROTHIAZIDE\TRIAMTERENE
     Dosage: ONGOING YES
     Route: 048
     Dates: start: 2012
  15. DILTIAZEM HCL [Concomitant]
     Active Substance: DILTIAZEM HYDROCHLORIDE
     Dosage: ONGOING YES, TIME RELEASED
     Route: 048
     Dates: start: 2015
  16. POTASSIUM CHLORIDE. [Concomitant]
     Active Substance: POTASSIUM CHLORIDE
     Indication: BLOOD POTASSIUM DECREASED
     Dosage: ONGOING YES, TWO 20 MEQ TABLETS PER DOSE
     Route: 048
     Dates: start: 2012
  17. TYLENOL [Concomitant]
     Active Substance: ACETAMINOPHEN
     Dosage: PREMEDICATION
     Route: 048
  18. ACTEMRA [Suspect]
     Active Substance: TOCILIZUMAB
     Dosage: ONGOING YES, EVERY 4 WEEKS
     Route: 042
     Dates: start: 20210401
  19. ASPIRIN 81 [Concomitant]
     Active Substance: ASPIRIN
     Dosage: ONGOING YES, CHEWABLE
     Route: 048
     Dates: start: 202006
  20. CALCIUM VITAMIN D3 [Concomitant]
     Indication: LACTOSE INTOLERANCE
     Dosage: ONGOING YES
     Route: 048
     Dates: start: 2018

REACTIONS (10)
  - Arthralgia [Recovered/Resolved]
  - Bone loss [Unknown]
  - Sinusitis [Recovered/Resolved]
  - Rash [Recovered/Resolved]
  - Pain [Recovered/Resolved]
  - Headache [Unknown]
  - Blindness [Unknown]
  - Wound infection [Recovered/Resolved]
  - Urinary tract infection [Recovered/Resolved]
  - Off label use [Unknown]

NARRATIVE: CASE EVENT DATE: 201910
